FAERS Safety Report 12612850 (Version 3)
Quarter: 2021Q2

REPORT INFORMATION
  Report Type: Spontaneous
  Country: US (occurrence: US)
  Receive Date: 20160802
  Receipt Date: 20210529
  Transmission Date: 20210716
  Serious: Yes (Death, Hospitalization, Other)
  Sender: FDA-Public Use
  Company Number: US-JNJFOC-20160720141

PATIENT
  Age: 21 Year
  Sex: Female
  Weight: 46 kg

DRUGS (3)
  1. TYLENOL PM [Suspect]
     Active Substance: ACETAMINOPHEN\DIPHENHYDRAMINE
     Indication: CHEST PAIN
     Dosage: 6000 MG, TWO DAYS (HANDFUL 2 DAYS)
     Route: 065
     Dates: start: 200302, end: 20030219
  2. TYLENOL PM [Suspect]
     Active Substance: ACETAMINOPHEN\DIPHENHYDRAMINE
     Indication: BACK PAIN
     Dosage: DOSE WAS 6000 MG TAKEN TWICE ON TWO SEPARATE DATES LESS THAN 1 DAY APART
     Route: 065
     Dates: end: 20030219
  3. ALCOHOL. [Suspect]
     Active Substance: ALCOHOL
     Indication: PRODUCT USED FOR UNKNOWN INDICATION
     Dosage: AVERAGE GRAM OF ETHANOL PER DAY: 120 GM/DAY FOR 5 DAYS
     Route: 048

REACTIONS (8)
  - Acute hepatic failure [Fatal]
  - Acute kidney injury [Unknown]
  - Intentional overdose [Fatal]
  - Pleural effusion [Unknown]
  - Brain oedema [Fatal]
  - Suicide attempt [Fatal]
  - Product administration error [Unknown]
  - Hypothermia [Unknown]

NARRATIVE: CASE EVENT DATE: 20030219
